FAERS Safety Report 7162667-7 (Version None)
Quarter: 2010Q4

REPORT INFORMATION
  Report Type: 
  Country: None (occurrence: None)
  Receive Date: 20101215
  Receipt Date: 20091216
  Transmission Date: 20110411
  Serious: Yes (Other)
  Sender: FDA-Public Use
  Company Number: US-PFIZER INC-2007095966

PATIENT
  Sex: Male
  Weight: 63.5 kg

DRUGS (5)
  1. LYRICA [Suspect]
     Indication: PAIN IN EXTREMITY
     Dosage: 75 MG, 1X/DAY
     Dates: start: 20071102
  2. LYRICA [Suspect]
     Indication: NEURALGIA
     Dosage: 50 MG, 1X/DAY
     Dates: start: 20090201
  3. PROSCAR [Concomitant]
     Dosage: UNK
  4. PRED FORTE [Concomitant]
     Dosage: UNK
  5. ACETAMINOPHEN [Concomitant]
     Dosage: UNK

REACTIONS (8)
  - DIZZINESS [None]
  - DRY MOUTH [None]
  - INTRAOCULAR PRESSURE INCREASED [None]
  - NEURALGIA [None]
  - PROSTATE CANCER [None]
  - PROSTATIC SPECIFIC ANTIGEN INCREASED [None]
  - VISION BLURRED [None]
  - VISUAL ACUITY REDUCED [None]
